FAERS Safety Report 5735311-0 (Version None)
Quarter: 2008Q2

REPORT INFORMATION
  Report Type: 
  Country: None (occurrence: None)
  Receive Date: 20080508
  Receipt Date: 20080508
  Transmission Date: 20081010
  Serious: No
  Sender: FDA-Public Use
  Company Number: None

PATIENT
  Age: 28 Year
  Sex: Female
  Weight: 77.1115 kg

DRUGS (2)
  1. CREST PROHEALTH PROCTOR + GAMBLE [Suspect]
     Indication: DENTAL PLAQUE
     Dosage: 20 ML DAILY DENTAL
     Route: 004
     Dates: start: 20071201, end: 20080505
  2. CREST PROHEALTH PROCTOR + GAMBLE [Suspect]
     Indication: GINGIVITIS
     Dosage: 20 ML DAILY DENTAL
     Route: 004
     Dates: start: 20071201, end: 20080505

REACTIONS (3)
  - DYSGEUSIA [None]
  - GLOSSODYNIA [None]
  - HYPOAESTHESIA ORAL [None]
